FAERS Safety Report 17361553 (Version 1)
Quarter: 2020Q1

REPORT INFORMATION
  Report Type: Spontaneous
  Country: US (occurrence: US)
  Receive Date: 20200117
  Receipt Date: 20200117
  Transmission Date: 20200409
  Serious: No
  Sender: FDA-Public Use
  Company Number: None

PATIENT
  Age: 27 Year
  Sex: Male

DRUGS (1)
  1. TOBI PODHALER [Suspect]
     Active Substance: TOBRAMYCIN
     Dosage: ?          OTHER DOSE:4 X 28 MG;?
     Route: 055
     Dates: start: 2019

REACTIONS (1)
  - Appendicitis [None]

NARRATIVE: CASE EVENT DATE: 20200107
